FAERS Safety Report 17717612 (Version 1)
Quarter: 2020Q2

REPORT INFORMATION
  Report Type: Spontaneous
  Country: US (occurrence: US)
  Receive Date: 20200427
  Receipt Date: 20200427
  Transmission Date: 20200714
  Serious: Yes (Other)
  Sender: FDA-Public Use
  Company Number: None

PATIENT
  Age: 78 Year
  Sex: Male
  Weight: 66.2 kg

DRUGS (11)
  1. RESTASIS [Concomitant]
     Active Substance: CYCLOSPORINE
  2. MAGNESIUM [Concomitant]
     Active Substance: MAGNESIUM
  3. MULTIVITAMIN [Concomitant]
     Active Substance: VITAMINS
  4. BETAMETHASONE. [Concomitant]
     Active Substance: BETAMETHASONE
  5. PROSCAR [Concomitant]
     Active Substance: FINASTERIDE
  6. DEXAMETHASONE. [Concomitant]
     Active Substance: DEXAMETHASONE
  7. ASPIRIN. [Concomitant]
     Active Substance: ASPIRIN
  8. COLESEVELAM [Concomitant]
     Active Substance: COLESEVELAM
  9. NINLARO [Suspect]
     Active Substance: IXAZOMIB CITRATE
     Indication: PLASMA CELL MYELOMA
     Dosage: ?          OTHER FREQUENCY:WEEKLY;?
     Route: 048
     Dates: start: 20200417
  10. ACYCLOVIR. [Concomitant]
     Active Substance: ACYCLOVIR
  11. METOPROLOL TARTRATE. [Concomitant]
     Active Substance: METOPROLOL TARTRATE

REACTIONS (1)
  - Platelet count decreased [None]

NARRATIVE: CASE EVENT DATE: 20200427
